FAERS Safety Report 6316474-5 (Version None)
Quarter: 2009Q3

REPORT INFORMATION
  Report Type: 
  Country: None (occurrence: None)
  Receive Date: 20090820
  Receipt Date: 20090814
  Transmission Date: 20100115
  Serious: Yes (Other)
  Sender: FDA-Public Use
  Company Number: US-BAYER-200929988NA

PATIENT
  Sex: Female

DRUGS (1)
  1. YAZ [Suspect]
     Indication: CONTRACEPTION
     Dates: start: 20080101, end: 20090812

REACTIONS (3)
  - AMENORRHOEA [None]
  - BLINDNESS UNILATERAL [None]
  - OPTIC NEURITIS [None]
